FAERS Safety Report 8617098-7 (Version None)
Quarter: 2012Q3

REPORT INFORMATION
  Report Type: 
  Country: None (occurrence: None)
  Receive Date: 20120823
  Receipt Date: 20120814
  Transmission Date: 20120928
  Serious: Yes (Other)
  Sender: FDA-Public Use
  Company Number: US-ASTRAZENECA-2010SE17491

PATIENT
  Age: 92 Year
  Sex: Female

DRUGS (2)
  1. PLAVIX [Interacting]
     Route: 065
  2. NEXIUM [Suspect]
     Route: 048

REACTIONS (4)
  - DRUG INTERACTION [None]
  - FALL [None]
  - LOSS OF CONSCIOUSNESS [None]
  - MALAISE [None]
